FAERS Safety Report 9154108 (Version 1)
Quarter: 2013Q1

REPORT INFORMATION
  Report Type: Spontaneous
  Country: US (occurrence: None)
  Receive Date: 20130308
  Receipt Date: 20130308
  Transmission Date: 20140127
  Serious: Yes (Hospitalization, Disabling)
  Sender: FDA-Public Use
  Company Number: None

PATIENT
  Sex: Female
  Weight: 132 kg

DRUGS (1)
  1. SEROQUEL [Suspect]
     Dosage: 7YRS AGO

REACTIONS (2)
  - Drug prescribing error [None]
  - Victim of abuse [None]
